FAERS Safety Report 24444830 (Version 2)
Quarter: 2024Q4

REPORT INFORMATION
  Report Type: Report from Study
  Country: US (occurrence: US)
  Receive Date: 20241016
  Receipt Date: 20241017
  Transmission Date: 20250115
  Serious: No
  Sender: ROCHE
  Company Number: US-ROCHE-2927523

PATIENT
  Age: 60 Year
  Sex: Female

DRUGS (8)
  1. RITUXAN [Suspect]
     Active Substance: RITUXIMAB
     Indication: Giant cell arteritis
     Dosage: ONCE?DOT: /DEC/2021, 08/MAR/2021
     Route: 042
     Dates: start: 20200811
  2. RITUXAN [Suspect]
     Active Substance: RITUXIMAB
     Indication: Polymyalgia rheumatica
  3. RITUXAN [Suspect]
     Active Substance: RITUXIMAB
     Indication: Arteritis
  4. COTRIM [Concomitant]
     Active Substance: SULFAMETHOXAZOLE\TRIMETHOPRIM
     Dosage: 160MG TRIMETHOPRIM/800MG SULFA TAKE M/W/F ONCE A DAY THREE TIMES A WEEK
     Route: 048
     Dates: start: 202008
  5. PREDNISONE [Concomitant]
     Active Substance: PREDNISONE
     Indication: Giant cell arteritis
     Route: 048
  6. PREDNISONE [Concomitant]
     Active Substance: PREDNISONE
     Indication: Polymyalgia rheumatica
  7. LEVOTHYROXINE [Concomitant]
     Active Substance: LEVOTHYROXINE
     Indication: Hypothyroidism
     Route: 048
     Dates: start: 2017
  8. CLOPIDOGREL [Concomitant]
     Active Substance: CLOPIDOGREL BISULFATE
     Route: 048
     Dates: start: 202008

REACTIONS (2)
  - Off label use [Unknown]
  - No adverse event [Unknown]
